FAERS Safety Report 8282140-2 (Version None)
Quarter: 2012Q2

REPORT INFORMATION
  Report Type: 
  Country: None (occurrence: None)
  Receive Date: 20120413
  Receipt Date: 20120403
  Transmission Date: 20120825
  Serious: Yes (Hospitalization)
  Sender: FDA-Public Use
  Company Number: FR-BRISTOL-MYERS SQUIBB COMPANY-16503757

PATIENT
  Age: 74 Year
  Sex: Male

DRUGS (11)
  1. LASIX [Suspect]
     Route: 048
  2. CRESTOR [Concomitant]
  3. ATROVENT [Concomitant]
  4. FLUTICASONE PROPIONATE/SALMETEROL [Concomitant]
  5. SPIRIVA [Concomitant]
  6. LERCANIDIPINE [Suspect]
     Route: 048
     Dates: end: 20120216
  7. MEDIATENSYL [Suspect]
     Route: 048
  8. ALBUTEROL [Concomitant]
  9. PLAVIX [Concomitant]
  10. IRBESARTAN [Suspect]
     Route: 048
     Dates: end: 20120216
  11. RASILEZ [Suspect]
     Route: 048
     Dates: end: 20120215

REACTIONS (2)
  - TRANSIENT ISCHAEMIC ATTACK [None]
  - BRONCHOPNEUMOPATHY [None]
